FAERS Safety Report 9342430 (Version 2)
Quarter: 2014Q1

REPORT INFORMATION
  Report Type: Spontaneous
  Country: IT (occurrence: IT)
  Receive Date: 20130611
  Receipt Date: 20140123
  Transmission Date: 20141002
  Serious: Yes (Other)
  Sender: FDA-Public Use
  Company Number: PHHY2013IT057715

PATIENT
  Sex: Female

DRUGS (4)
  1. PAROXETINE [Suspect]
     Dosage: 400 MG, UNK
     Route: 048
     Dates: start: 20130423, end: 20130423
  2. TRILAFON [Suspect]
     Dosage: 40 MG, UNK
     Route: 048
     Dates: start: 20130423, end: 20130423
  3. SURMONTIL [Suspect]
     Dosage: 40 MG, UNK
     Route: 048
     Dates: start: 20130423, end: 20130423
  4. XANAX [Suspect]
     Dosage: 0.75 MG/ML, UNK
     Route: 048
     Dates: start: 20130423, end: 20130423

REACTIONS (3)
  - Drug abuse [Recovering/Resolving]
  - Toxicity to various agents [Recovering/Resolving]
  - Confusional state [Recovering/Resolving]
